FAERS Safety Report 8971515 (Version 1)
Quarter: 2012Q4

REPORT INFORMATION
  Report Type: 
  Country: FR (occurrence: FR)
  Receive Date: 20121218
  Receipt Date: 20121218
  Transmission Date: 20130627
  Serious: Yes (Life-Threatening, Hospitalization, Other)
  Sender: FDA-Public Use
  Company Number: FR-009507513-1012FRA00047

PATIENT
  Age: 79 None
  Sex: Female

DRUGS (8)
  1. FORTZAAR [Suspect]
     Indication: HYPERTENSION
     Dosage: 100 mg-25
     Route: 048
     Dates: end: 20101011
  2. JANUVIA [Suspect]
     Indication: TYPE 2 DIABETES MELLITUS
     Dosage: 100 mg, qd
     Route: 048
     Dates: end: 20101011
  3. MIDAMOR [Suspect]
     Dosage: 5 mg, qd
     Route: 048
     Dates: end: 20101011
  4. LASILIX [Suspect]
     Dosage: 60 mg, qd
     Route: 048
     Dates: end: 20101011
  5. GLUCOPHAGE [Suspect]
     Indication: TYPE 2 DIABETES MELLITUS
     Dosage: 1000 mg, tid
     Route: 048
     Dates: end: 20101011
  6. ALLOPURINOL [Suspect]
     Dosage: 1 DF, qd
     Route: 048
     Dates: end: 20101011
  7. DIAMICRON [Suspect]
     Dosage: 30 mg, tid
     Route: 048
  8. ATENOLOL [Suspect]
     Dosage: 1 DF, qd
     Route: 048

REACTIONS (10)
  - Dehydration [Recovered/Resolved]
  - Renal failure acute [Not Recovered/Not Resolved]
  - Hyperkalaemia [Recovered/Resolved]
  - Lactic acidosis [Recovered/Resolved]
  - White blood cell count increased [Unknown]
  - Blood pressure diastolic decreased [Unknown]
  - Bradycardia [Unknown]
  - Thrombocytosis [Unknown]
  - Normochromic normocytic anaemia [Unknown]
  - Diarrhoea [Unknown]
